FAERS Safety Report 7706219-6 (Version None)
Quarter: 2011Q3

REPORT INFORMATION
  Report Type: 
  Country: None (occurrence: None)
  Receive Date: 20110824
  Receipt Date: 20110818
  Transmission Date: 20111222
  Serious: Yes (Hospitalization, Congenital Anomaly)
  Sender: FDA-Public Use
  Company Number: FR-ROCHE-743160

PATIENT
  Sex: Male
  Weight: 3.3 kg

DRUGS (1)
  1. TAMIFLU [Suspect]
     Route: 064
     Dates: start: 20091115, end: 20091120

REACTIONS (3)
  - CONGENITAL HYDROCEPHALUS [None]
  - MACROCEPHALY [None]
  - KIDNEY DUPLEX [None]
